FAERS Safety Report 9956835 (Version 1)
Quarter: 2014Q1

REPORT INFORMATION
  Report Type: Spontaneous
  Country: US (occurrence: LB)
  Receive Date: 20140304
  Receipt Date: 20140304
  Transmission Date: 20141002
  Serious: No
  Sender: FDA-Public Use
  Company Number: US-ABBVIE-13P-163-1100885-00

PATIENT
  Age: 42 Year
  Sex: Female
  Weight: 65.38 kg

DRUGS (4)
  1. HUMIRA [Suspect]
     Indication: CROHN^S DISEASE
     Route: 058
     Dates: start: 20120321, end: 20120321
  2. HUMIRA [Suspect]
     Route: 058
     Dates: start: 201304, end: 201304
  3. HUMIRA [Suspect]
     Route: 058
     Dates: start: 201304, end: 201305
  4. IRON SUPPLEMENT WITH VIT C + HERBS [Concomitant]
     Indication: IRON DEFICIENCY

REACTIONS (3)
  - Injection site rash [Not Recovered/Not Resolved]
  - Rash generalised [Not Recovered/Not Resolved]
  - Hepatic enzyme increased [Recovered/Resolved]
